FAERS Safety Report 6501451-1 (Version None)
Quarter: 2009Q4

REPORT INFORMATION
  Report Type: 
  Country: None (occurrence: None)
  Receive Date: 20091216
  Receipt Date: 20091207
  Transmission Date: 20100525
  Serious: Yes (Hospitalization, Other)
  Sender: FDA-Public Use
  Company Number: DE-JNJFOC-20091004410

PATIENT
  Age: 35 Year
  Sex: Male

DRUGS (3)
  1. RISPERDAL [Suspect]
     Indication: DEPRESSION
     Route: 048
  2. REMERGIL [Suspect]
     Indication: ANXIETY DISORDER
     Route: 048
  3. NOVALGIN [Suspect]
     Indication: PAIN
     Route: 048

REACTIONS (2)
  - BLOOD CREATINE PHOSPHOKINASE INCREASED [None]
  - RHABDOMYOLYSIS [None]
